APPROVED DRUG PRODUCT: LUMIGAN
Active Ingredient: BIMATOPROST
Strength: 0.01%
Dosage Form/Route: SOLUTION/DROPS;OPHTHALMIC
Application: N022184 | Product #001 | TE Code: AB
Applicant: ABBVIE INC
Approved: Aug 31, 2010 | RLD: Yes | RS: Yes | Type: RX

PATENTS:
Patent 7851504 | Expires: Jun 13, 2027